FAERS Safety Report 8259785-9 (Version None)
Quarter: 2012Q2

REPORT INFORMATION
  Report Type: 
  Country: None (occurrence: None)
  Receive Date: 20120404
  Receipt Date: 20120329
  Transmission Date: 20120825
  Serious: Yes (Other)
  Sender: FDA-Public Use
  Company Number: IT-TEVA-331086ISR

PATIENT
  Sex: Male

DRUGS (1)
  1. CARBOPLATIN [Suspect]
     Indication: LUNG NEOPLASM MALIGNANT
     Dosage: 300 MILLIGRAM;
     Route: 042
     Dates: start: 20120210, end: 20120312

REACTIONS (3)
  - DYSPNOEA [None]
  - HOT FLUSH [None]
  - BRONCHOSTENOSIS [None]
